FAERS Safety Report 20664935 (Version 1)
Quarter: 2022Q2

REPORT INFORMATION
  Report Type: Spontaneous
  Country: IT (occurrence: None)
  Receive Date: 20220401
  Receipt Date: 20220401
  Transmission Date: 20220721
  Serious: Yes (Life-Threatening, Hospitalization)
  Sender: FDA-Public Use
  Company Number: 2022A131834

PATIENT
  Age: 25 Year
  Sex: Female
  Weight: 40 kg

DRUGS (4)
  1. QUETIAPINE FUMARATE [Suspect]
     Active Substance: QUETIAPINE FUMARATE
     Dosage: 100.0MG ONCE/SINGLE ADMINISTRATION
     Route: 048
     Dates: start: 20220129, end: 20220129
  2. DULOXETINE HYDROCHLORIDE [Suspect]
     Active Substance: DULOXETINE HYDROCHLORIDE
     Dosage: 15.0DF ONCE/SINGLE ADMINISTRATION
     Route: 048
     Dates: start: 20220129, end: 20220129
  3. MIRTAZAPINE [Suspect]
     Active Substance: MIRTAZAPINE
     Dosage: 150.0MG ONCE/SINGLE ADMINISTRATION
     Route: 048
     Dates: start: 20220129, end: 20220129
  4. TRAZODONE HYDROCHLORIDE [Suspect]
     Active Substance: TRAZODONE HYDROCHLORIDE
     Dosage: 7.0DF ONCE/SINGLE ADMINISTRATION
     Route: 048
     Dates: start: 20220129, end: 20220129

REACTIONS (2)
  - Suicide attempt [Recovering/Resolving]
  - Drug abuse [Recovering/Resolving]

NARRATIVE: CASE EVENT DATE: 20220129
